FAERS Safety Report 10273294 (Version 1)
Quarter: 2014Q1

REPORT INFORMATION
  Report Type: Spontaneous
  Country: US (occurrence: None)
  Receive Date: 20140306
  Receipt Date: 20140306
  Transmission Date: 20141002
  Serious: Yes (Hospitalization)
  Sender: FDA-Public Use
  Company Number: 163-21880-13081106

PATIENT
  Age: 91 Year
  Sex: Female
  Weight: 59.9 kg

DRUGS (11)
  1. REVLIMID [Suspect]
     Indication: PLASMA CELL MYELOMA
     Route: 048
     Dates: start: 201301
  2. PLAVIX(CLOPIDOGREL SULFATE) (TABLETS) [Concomitant]
  3. MULTIVITAMIN(MULTIVITAMINS)(TABLETS) [Concomitant]
  4. PREDNISONE(PREDNISONE) (TABLETS) [Concomitant]
  5. SYNTHROID(LEVOTHYROXINE SODIUM)(TABLETS) [Concomitant]
  6. METOPROLOL TARTRATE(METOPROLOL TARTRATE)(TABLETS) [Concomitant]
  7. LEXAPRO(ESCITALOPRAM OXALATE) (TABLETS) [Concomitant]
  8. CELEBREX(CELECOXIB)(CAPSULES) [Concomitant]
  9. AMOX TR-K CLV(TABLETS) [Concomitant]
  10. CHERATUSSIN AC(CHERATUSSIN AC)(SYRUP) [Concomitant]
  11. HYDROCODONE/ACETAMINOPHEN(REMEDEINE)(UNKNOWN) [Concomitant]

REACTIONS (1)
  - Pneumonia [None]
